FAERS Safety Report 22065701 (Version 1)
Quarter: 2023Q1

REPORT INFORMATION
  Report Type: Spontaneous
  Country: US (occurrence: US)
  Receive Date: 20230306
  Receipt Date: 20230306
  Transmission Date: 20230418
  Serious: No
  Sender: FDA-Public Use
  Company Number: US-Albireo AB-2023ALB000021

PATIENT
  Weight: 8 kg

DRUGS (3)
  1. BYLVAY [Suspect]
     Active Substance: ODEVIXIBAT
     Indication: Product used for unknown indication
     Route: 048
  2. BYLVAY [Suspect]
     Active Substance: ODEVIXIBAT
     Route: 048
  3. BYLVAY [Suspect]
     Active Substance: ODEVIXIBAT
     Route: 048

REACTIONS (2)
  - Product residue present [Unknown]
  - Pruritus [Unknown]
